FAERS Safety Report 13303590 (Version 2)
Quarter: 2018Q1

REPORT INFORMATION
  Report Type: Report from Study
  Country: None (occurrence: AR)
  Receive Date: 20170307
  Receipt Date: 20180207
  Transmission Date: 20180508
  Serious: Yes (Other)
  Sender: FDA-Public Use
  Company Number: AR-ABBVIE-17P-007-1896230-00

PATIENT
  Sex: Female

DRUGS (2)
  1. CALCITRIOL. [Concomitant]
     Active Substance: CALCITRIOL
     Indication: PRODUCT USED FOR UNKNOWN INDICATION
  2. ZEMPLAR [Suspect]
     Active Substance: PARICALCITOL
     Indication: HYPERPARATHYROIDISM SECONDARY
     Route: 042
     Dates: start: 20130801

REACTIONS (13)
  - Viral infection [Recovering/Resolving]
  - Parathyroidectomy [Unknown]
  - Weight decreased [Recovering/Resolving]
  - Arrhythmia [Recovering/Resolving]
  - Bacterial infection [Recovering/Resolving]
  - Heart valve stenosis [Recovering/Resolving]
  - Coronary artery disease [Recovering/Resolving]
  - Surgery [Recovered/Resolved]
  - Blood parathyroid hormone increased [Unknown]
  - Drug ineffective [Recovering/Resolving]
  - Pyrexia [Recovering/Resolving]
  - Emotional disorder [Recovering/Resolving]
  - Blood parathyroid hormone abnormal [Not Recovered/Not Resolved]

NARRATIVE: CASE EVENT DATE: 2015
